FAERS Safety Report 9536613 (Version 5)
Quarter: 2016Q3

REPORT INFORMATION
  Report Type: Report from Study
  Country: US (occurrence: US)
  Receive Date: 20130507
  Receipt Date: 20160725
  Transmission Date: 20161109
  Serious: Yes (Other)
  Sender: FDA-Public Use
  Company Number: PHEH2012US017758

PATIENT
  Age: 10 Year
  Sex: Male
  Weight: 63.2 kg

DRUGS (12)
  1. DEPAKOTE [Concomitant]
     Active Substance: DIVALPROEX SODIUM
     Indication: SEIZURE
     Dosage: 325 MG, BID
     Route: 048
     Dates: start: 2007
  2. ZONEGRAN [Concomitant]
     Active Substance: ZONISAMIDE
     Indication: SEIZURE
     Dosage: 200 MG, BID
     Route: 048
     Dates: start: 2009
  3. KEPPRA [Concomitant]
     Active Substance: LEVETIRACETAM
     Indication: SEIZURE
     Dosage: 500 MG AM/ 250 MG PM
     Route: 048
     Dates: start: 2008
  4. FOCALIN [Concomitant]
     Active Substance: DEXMETHYLPHENIDATE HYDROCHLORIDE
     Indication: PRODUCT USED FOR UNKNOWN INDICATION
     Route: 065
  5. AFINITOR [Suspect]
     Active Substance: EVEROLIMUS
     Indication: ASTROCYTOMA, LOW GRADE
     Dosage: 10 MG, QD
     Route: 048
     Dates: start: 201512
  6. CHLORAZIN//CHLORPROMAZINE HYDROCHLORIDE [Concomitant]
     Indication: SLEEP DISORDER
     Dosage: 50AM 100PM 50PM
     Route: 048
     Dates: start: 2013
  7. CLONIDINE. [Concomitant]
     Active Substance: CLONIDINE
     Indication: PRODUCT USED FOR UNKNOWN INDICATION
     Route: 065
  8. CARNITOR [Concomitant]
     Active Substance: LEVOCARNITINE
     Indication: CARNITINE DECREASED
     Dosage: 990 MG, TID
     Route: 048
     Dates: start: 2011
  9. RISPERDAL [Concomitant]
     Active Substance: RISPERIDONE
     Indication: PRODUCT USED FOR UNKNOWN INDICATION
     Route: 065
  10. AFINITOR [Suspect]
     Active Substance: EVEROLIMUS
     Indication: BRAIN NEOPLASM BENIGN
     Dosage: 5 MG, QD
     Route: 048
     Dates: start: 20110616
  11. SYNTHROID [Concomitant]
     Active Substance: LEVOTHYROXINE SODIUM
     Indication: HYPOTHYROIDISM
     Dosage: 112 UG, UNK
     Route: 048
     Dates: start: 2007
  12. BENADRYL                           /00647601/ [Concomitant]
     Active Substance: CAMPHOR\DIPHENHYDRAMINE\ZINC OXIDE
     Indication: SLEEP DISORDER
     Dosage: 25 MG, HS
     Route: 048
     Dates: start: 2015

REACTIONS (7)
  - Abnormal behaviour [Not Recovered/Not Resolved]
  - Drug administered to patient of inappropriate age [Unknown]
  - Neoplasm progression [Not Recovered/Not Resolved]
  - Scoliosis [Unknown]
  - Blood cholesterol increased [Not Recovered/Not Resolved]
  - Autism [Not Recovered/Not Resolved]
  - Brain neoplasm [Not Recovered/Not Resolved]

NARRATIVE: CASE EVENT DATE: 20120904
